FAERS Safety Report 5717300-5 (Version None)
Quarter: 2008Q2

REPORT INFORMATION
  Report Type: 
  Country: None (occurrence: None)
  Receive Date: 20080425
  Receipt Date: 20080415
  Transmission Date: 20081010
  Serious: Yes (Hospitalization)
  Sender: FDA-Public Use
  Company Number: DK-RB-009394-08

PATIENT
  Sex: Female

DRUGS (7)
  1. SUBOXONE [Suspect]
     Route: 065
  2. SUBOXONE [Suspect]
     Route: 065
     Dates: start: 20080110
  3. SUBOXONE [Suspect]
     Route: 065
     Dates: start: 20080116
  4. RISPERDAL [Concomitant]
     Indication: DRUG USE FOR UNKNOWN INDICATION
     Dosage: DOSAGE UNKNOWN
     Route: 065
  5. CENTYL [Concomitant]
     Indication: DRUG USE FOR UNKNOWN INDICATION
     Dosage: DOSAGE UNKNOWN
     Route: 065
  6. AKARIN [Concomitant]
     Indication: DRUG USE FOR UNKNOWN INDICATION
     Dosage: DOSAGE UNKNOWN
     Route: 065
  7. IMOCLONE [Concomitant]
     Indication: DRUG USE FOR UNKNOWN INDICATION
     Dosage: UNKNOWN DOSAGE
     Route: 065

REACTIONS (2)
  - LOCALISED OEDEMA [None]
  - OEDEMA PERIPHERAL [None]
